FAERS Safety Report 15098794 (Version 1)
Quarter: 2018Q3

REPORT INFORMATION
  Report Type: Spontaneous
  Country: CA (occurrence: CA)
  Receive Date: 20180702
  Receipt Date: 20180702
  Transmission Date: 20181010
  Serious: Yes (Death, Other)
  Sender: FDA-Public Use
  Company Number: CA-GILEAD-2018-0347600

PATIENT
  Age: 48 Year
  Sex: Female

DRUGS (5)
  1. ENFUVIRTIDE. [Suspect]
     Active Substance: ENFUVIRTIDE
     Indication: PRODUCT USED FOR UNKNOWN INDICATION
     Dosage: 90.0 MG, BID
     Route: 058
  2. 3TC [Concomitant]
     Active Substance: LAMIVUDINE
  3. APTIVUS [Suspect]
     Active Substance: TIPRANAVIR
     Indication: PRODUCT USED FOR UNKNOWN INDICATION
     Dosage: 500.0 MG, BID
     Route: 048
  4. METHYLPREDNISOLONE. [Concomitant]
     Active Substance: METHYLPREDNISOLONE
  5. VIREAD [Suspect]
     Active Substance: TENOFOVIR DISOPROXIL FUMARATE
     Indication: PRODUCT USED FOR UNKNOWN INDICATION
     Dosage: 300.0 MG, QD
     Route: 048

REACTIONS (4)
  - Haemorrhage [Fatal]
  - Thrombocytopenic purpura [Fatal]
  - Ecchymosis [Fatal]
  - Haemolysis [Fatal]
